FAERS Safety Report 14162718 (Version 2)
Quarter: 2017Q4

REPORT INFORMATION
  Report Type: Spontaneous
  Country: JP (occurrence: JP)
  Receive Date: 20171106
  Receipt Date: 20171128
  Transmission Date: 20180321
  Serious: Yes (Death, Other)
  Sender: FDA-Public Use
  Company Number: JP-ALLERGAN-1763464US

PATIENT
  Age: 78 Year
  Sex: Female

DRUGS (1)
  1. RISEDRONATE SODIUM - BP [Suspect]
     Active Substance: RISEDRONATE SODIUM
     Indication: PRODUCT USED FOR UNKNOWN INDICATION
     Dosage: UNK, UNKNOWN
     Route: 048

REACTIONS (8)
  - Oral dysaesthesia [Unknown]
  - Tooth extraction [Unknown]
  - Impaired healing [Unknown]
  - Squamous cell carcinoma of the oral cavity [Fatal]
  - Resorption bone increased [Unknown]
  - Malocclusion [Unknown]
  - Pain [Unknown]
  - Osteomyelitis [Unknown]

NARRATIVE: CASE EVENT DATE: 201410
